FAERS Safety Report 23768972 (Version 1)
Quarter: 2024Q2

REPORT INFORMATION
  Report Type: Spontaneous
  Country: US (occurrence: None)
  Receive Date: 20240421
  Receipt Date: 20240421
  Transmission Date: 20240716
  Serious: Yes (Death, Life-Threatening, Hospitalization)
  Sender: FDA-Public Use
  Company Number: None

PATIENT
  Age: 54 Year
  Sex: Male
  Weight: 141 kg

DRUGS (1)
  1. PACERONE [Suspect]
     Active Substance: AMIODARONE HYDROCHLORIDE
     Indication: Atrial fibrillation
     Dates: start: 20211101, end: 20230530

REACTIONS (7)
  - Haemoptysis [None]
  - Hypersensitivity pneumonitis [None]
  - Pulmonary alveolar haemorrhage [None]
  - Acute respiratory failure [None]
  - Pulmonary toxicity [None]
  - Pneumothorax [None]
  - Shock [None]

NARRATIVE: CASE EVENT DATE: 20230614
